FAERS Safety Report 9390992 (Version 2)
Quarter: 2014Q1

REPORT INFORMATION
  Report Type: Spontaneous
  Country: US (occurrence: US)
  Receive Date: 20130709
  Receipt Date: 20140110
  Transmission Date: 20141002
  Serious: Yes (Other)
  Sender: FDA-Public Use
  Company Number: US-BAYER-2013-080108

PATIENT
  Age: 6 Month
  Sex: Male

DRUGS (1)
  1. GADAVIST [Suspect]
     Indication: NUCLEAR MAGNETIC RESONANCE IMAGING
     Dosage: 0.8 ML, ONCE
     Dates: start: 20130627, end: 20130627

REACTIONS (3)
  - Anaphylactic reaction [Recovering/Resolving]
  - Urticaria [Recovering/Resolving]
  - Off label use [None]
